FAERS Safety Report 19631017 (Version 5)
Quarter: 2022Q3

REPORT INFORMATION
  Report Type: Report from Study
  Country: AR (occurrence: AR)
  Receive Date: 20210729
  Receipt Date: 20220909
  Transmission Date: 20221027
  Serious: Yes (Other)
  Sender: FDA-Public Use
  Company Number: PHHY2018AR082322

PATIENT
  Sex: Female

DRUGS (1)
  1. KISQALI [Suspect]
     Active Substance: RIBOCICLIB
     Indication: Breast cancer metastatic
     Dosage: 600 MG, QD
     Route: 048
     Dates: start: 20180723

REACTIONS (12)
  - White blood cell count decreased [Not Recovered/Not Resolved]
  - Blood pressure increased [Unknown]
  - Decreased immune responsiveness [Recovered/Resolved]
  - COVID-19 [Unknown]
  - Gait inability [Unknown]
  - Speech disorder [Unknown]
  - Coordination abnormal [Unknown]
  - Illness [Unknown]
  - Asthenia [Unknown]
  - Bone pain [Unknown]
  - Feeling abnormal [Unknown]
  - Abdominal pain upper [Unknown]

NARRATIVE: CASE EVENT DATE: 20210715
